FAERS Safety Report 23782007 (Version 1)
Quarter: 2024Q2

REPORT INFORMATION
  Report Type: Report from Study
  Country: US (occurrence: US)
  Receive Date: 20240425
  Receipt Date: 20240425
  Transmission Date: 20240716
  Serious: Yes (Other)
  Sender: FDA-Public Use
  Company Number: US-JNJFOC-20240445325

PATIENT

DRUGS (4)
  1. SPRAVATO [Suspect]
     Active Substance: ESKETAMINE
     Indication: Depression
     Dates: start: 202305
  2. SPRAVATO [Suspect]
     Active Substance: ESKETAMINE
  3. TESTOSTERONE [Concomitant]
     Active Substance: TESTOSTERONE
  4. REMERON [Concomitant]
     Active Substance: MIRTAZAPINE

REACTIONS (4)
  - Joint injury [Unknown]
  - Mania [Unknown]
  - Dissociation [Unknown]
  - Product dose omission issue [Unknown]

NARRATIVE: CASE EVENT DATE: 20240101
